FAERS Safety Report 15488307 (Version 1)
Quarter: 2018Q4

REPORT INFORMATION
  Report Type: Spontaneous
  Country: US (occurrence: US)
  Receive Date: 20181011
  Receipt Date: 20181011
  Transmission Date: 20190205
  Serious: Yes (Disabling, Other)
  Sender: FDA-Public Use
  Company Number: US-AMGEN-USASP2018138515

PATIENT
  Age: 50 Year
  Sex: Female
  Weight: 68.95 kg

DRUGS (6)
  1. LETROZOLE. [Concomitant]
     Active Substance: LETROZOLE
     Indication: HORMONE LEVEL ABNORMAL
     Dosage: 2.5 UNK, QD (QUITE A WHILE)
  2. CALCIUM WITH VITAMIN D [Concomitant]
     Active Substance: CALCIUM\VITAMIN D
     Dosage: 600 MG, UNK
  3. XGEVA [Suspect]
     Active Substance: DENOSUMAB
     Indication: PROPHYLAXIS
     Dosage: UNK, QMO
     Route: 058
     Dates: start: 2018
  4. IBRANCE [Suspect]
     Active Substance: PALBOCICLIB
     Indication: BREAST CANCER METASTATIC
     Dosage: 125 MG, 21 DAYS ON OFF A WEEK
     Route: 065
  5. VITAMIN B12 [Concomitant]
     Active Substance: CYANOCOBALAMIN
  6. HERCEPTIN [Concomitant]
     Active Substance: TRASTUZUMAB

REACTIONS (8)
  - Fall [Unknown]
  - Mobility decreased [Unknown]
  - Joint noise [Unknown]
  - Osteoarthritis [Not Recovered/Not Resolved]
  - General physical health deterioration [Not Recovered/Not Resolved]
  - Gait disturbance [Not Recovered/Not Resolved]
  - Balance disorder [Unknown]
  - Joint injury [Unknown]
